FAERS Safety Report 24704916 (Version 2)
Quarter: 2024Q4

REPORT INFORMATION
  Report Type: Spontaneous
  Country: FR (occurrence: FR)
  Receive Date: 20241206
  Receipt Date: 20241230
  Transmission Date: 20250115
  Serious: Yes (Hospitalization, Other)
  Sender: AUROBINDO
  Company Number: FR-AFSSAPS-RS2024001130

PATIENT
  Age: 66 Year
  Sex: Male
  Weight: 81 kg

DRUGS (2)
  1. AMOXICILLIN [Suspect]
     Active Substance: AMOXICILLIN
     Indication: Endocarditis
     Dosage: 12 GRAM, ONCE A DAY
     Route: 042
     Dates: start: 20220204, end: 20220308
  2. CEFTRIAXONE [Suspect]
     Active Substance: CEFTRIAXONE
     Indication: Endocarditis
     Dosage: 4 GRAM, ONCE A DAY
     Route: 042
     Dates: start: 20220204, end: 20220308

REACTIONS (2)
  - Acute kidney injury [Recovered/Resolved]
  - Antibiotic level above therapeutic [Recovered/Resolved]

NARRATIVE: CASE EVENT DATE: 20220201
